FAERS Safety Report 4618904-3 (Version None)
Quarter: 2005Q1

REPORT INFORMATION
  Report Type: 
  Country: None (occurrence: None)
  Receive Date: 20050323
  Receipt Date: 20050315
  Transmission Date: 20050727
  Serious: Yes (Other)
  Sender: FDA-Public Use
  Company Number: S04-USA-07700-01

PATIENT
  Age: 52 Year
  Sex: Male

DRUGS (5)
  1. LEXAPRO [Suspect]
     Indication: DEPRESSION
     Dosage: 10 MG QD PO
     Route: 048
  2. AZITHROMYCIN [Suspect]
     Dates: start: 20040810, end: 20040814
  3. FLONASE [Concomitant]
  4. ALLEGRA [Concomitant]
  5. PREVACID [Concomitant]

REACTIONS (1)
  - MYOCLONUS [None]
